FAERS Safety Report 9190531 (Version 1)
Quarter: 2013Q1

REPORT INFORMATION
  Report Type: Spontaneous
  Country: US (occurrence: US)
  Receive Date: 20130326
  Receipt Date: 20130326
  Transmission Date: 20140127
  Serious: No
  Sender: FDA-Public Use
  Company Number: US-009507513-1303USA008852

PATIENT
  Age: 37 Year
  Sex: Female

DRUGS (2)
  1. PEGINTRON [Suspect]
     Route: 058
  2. REBETOL [Suspect]
     Route: 048

REACTIONS (1)
  - Drug intolerance [Unknown]
